FAERS Safety Report 6644881-X (Version None)
Quarter: 2010Q1

REPORT INFORMATION
  Report Type: 
  Country: None (occurrence: None)
  Receive Date: 20100317
  Receipt Date: 20100303
  Transmission Date: 20100710
  Serious: Yes (Death, Hospitalization)
  Sender: FDA-Public Use
  Company Number: 2009AC000271

PATIENT
  Age: 82 Year
  Sex: Female
  Weight: 75.7507 kg

DRUGS (35)
  1. DIGOXIN [Suspect]
  2. DIGOXIN [Suspect]
     Dosage: .125 MG; QD; PO
     Route: 048
     Dates: start: 20070627
  3. ALDRIN [Concomitant]
  4. NEXIUM [Concomitant]
  5. POTASSIUM [Concomitant]
  6. CITRACAL [Concomitant]
  7. ASPIRIN [Concomitant]
  8. FUROSEMIDE [Concomitant]
  9. METOPROLOL TARTRATE [Concomitant]
  10. MAGNESIUM OXIDE [Concomitant]
  11. ATORVASTATIN [Concomitant]
  12. AMIODARONE HCL [Concomitant]
  13. OMEPRAZOLE [Concomitant]
  14. RISPERDAL [Concomitant]
  15. LISINOPRIL [Concomitant]
  16. IMDUR [Concomitant]
  17. LOVENOX [Concomitant]
  18. ALBUTEROL [Concomitant]
  19. ISOSORBIDE MONONITRATE [Concomitant]
  20. MULTI-VITAMIN [Concomitant]
  21. PROTONIX [Concomitant]
  22. ACETAMINOPHEN [Concomitant]
  23. ZOFRAN [Concomitant]
  24. AMPICILLIN AND SULBACTAM [Concomitant]
  25. VANCOMYCIN [Concomitant]
  26. LASIX [Concomitant]
  27. COUMADIN [Concomitant]
  28. CARAFATE [Concomitant]
  29. CALCIUM [Concomitant]
  30. BONIVA [Concomitant]
  31. . [Concomitant]
  32. METOLAZONE [Concomitant]
  33. LIPITOR [Concomitant]
  34. COREG [Concomitant]
  35. FEOSOL [Concomitant]

REACTIONS (15)
  - ABDOMINAL DISTENSION [None]
  - ABDOMINAL PAIN UPPER [None]
  - AORTIC STENOSIS [None]
  - ATRIAL PRESSURE INCREASED [None]
  - CARDIAC FAILURE CONGESTIVE [None]
  - CARDIAC PSEUDOANEURYSM [None]
  - CORONARY ARTERY OCCLUSION [None]
  - DYSPNOEA EXERTIONAL [None]
  - ECONOMIC PROBLEM [None]
  - HIATUS HERNIA [None]
  - INJURY [None]
  - LEFT VENTRICULAR HYPERTROPHY [None]
  - NAUSEA [None]
  - VENTRICULAR HYPOKINESIA [None]
  - WOUND INFECTION [None]
